FAERS Safety Report 7780352-5 (Version None)
Quarter: 2011Q3

REPORT INFORMATION
  Report Type: 
  Country: None (occurrence: None)
  Receive Date: 20110922
  Receipt Date: 20110909
  Transmission Date: 20111222
  Serious: Yes (Other)
  Sender: FDA-Public Use
  Company Number: 20110571

PATIENT
  Age: 33 Year
  Sex: Female
  Weight: 65 kg

DRUGS (2)
  1. VENOFER [Suspect]
     Indication: IRON DEFICIENCY ANAEMIA
     Dosage: 200 MG IN 200 ML NACL 0.9 % INTRAVENOUS
     Route: 042
     Dates: start: 20110613, end: 20110613
  2. SODIUM CHLORIDE [Concomitant]

REACTIONS (4)
  - INFUSION RELATED REACTION [None]
  - DIARRHOEA [None]
  - TYPE I HYPERSENSITIVITY [None]
  - MATERNAL EXPOSURE DURING PREGNANCY [None]
